FAERS Safety Report 7691038-X (Version None)
Quarter: 2011Q3

REPORT INFORMATION
  Report Type: 
  Country: None (occurrence: None)
  Receive Date: 20110818
  Receipt Date: 20110810
  Transmission Date: 20111222
  Serious: Yes (Other)
  Sender: FDA-Public Use
  Company Number: FR-ROCHE-796107

PATIENT
  Sex: Female

DRUGS (5)
  1. EXEMESTANE [Suspect]
     Dosage: LAST DOSE ON 20 MAY 2011
     Route: 065
     Dates: start: 20110408
  2. LEVOTHYROXINE SODIUM [Concomitant]
  3. BISOPROLOL FUMARATE AND HYDROCHLOROTHIAZIDE [Concomitant]
  4. BEVACIZUMAB [Suspect]
     Dosage: LAST DOSE ON 29 APR 2011, PERMANENTLY DISCONTINUED
     Route: 065
     Dates: start: 20110408, end: 20110429
  5. NICARDIPINE HCL [Concomitant]

REACTIONS (2)
  - HYPERTENSION [None]
  - RENAL FAILURE [None]
